FAERS Safety Report 14337687 (Version 3)
Quarter: 2023Q2

REPORT INFORMATION
  Report Type: Report from Study
  Country: US (occurrence: US)
  Receive Date: 20171229
  Receipt Date: 20230428
  Transmission Date: 20230721
  Serious: Yes (Hospitalization)
  Sender: FDA-Public Use
  Company Number: US-OTSUKA-2017_028168

PATIENT
  Sex: Female

DRUGS (4)
  1. ARIPIPRAZOLE [Suspect]
     Active Substance: ARIPIPRAZOLE
     Indication: Product used for unknown indication
     Dosage: UNK (REDUCED DOSE)
     Route: 065
  2. ARIPIPRAZOLE [Suspect]
     Active Substance: ARIPIPRAZOLE
     Dosage: UNK
     Route: 065
  3. ABILIFY MAINTENA [Suspect]
     Active Substance: ARIPIPRAZOLE
     Indication: Product used for unknown indication
     Dosage: UNK (REDUCED DOSE)
     Route: 030
  4. ABILIFY MAINTENA [Suspect]
     Active Substance: ARIPIPRAZOLE
     Dosage: UNK
     Route: 030
     Dates: start: 20171207

REACTIONS (14)
  - Dissociative identity disorder [Unknown]
  - Feelings of worthlessness [Unknown]
  - Renal impairment [Unknown]
  - Hallucination [Unknown]
  - Suicide threat [Recovered/Resolved]
  - Depression [Unknown]
  - Feeling abnormal [Not Recovered/Not Resolved]
  - Disorganised speech [Recovered/Resolved]
  - Thinking abnormal [Not Recovered/Not Resolved]
  - Hypophagia [Recovered/Resolved]
  - Anxiety [Not Recovered/Not Resolved]
  - Decreased appetite [Recovering/Resolving]
  - Drug ineffective [Unknown]
  - Job dissatisfaction [Unknown]
